FAERS Safety Report 16916872 (Version 1)
Quarter: 2019Q4

REPORT INFORMATION
  Report Type: Spontaneous
  Country: US (occurrence: US)
  Receive Date: 20191015
  Receipt Date: 20191015
  Transmission Date: 20200122
  Serious: Yes (Hospitalization, Other)
  Sender: FDA-Public Use
  Company Number: US-ASTRAZENECA-2019SF43949

PATIENT
  Age: 70 Year
  Sex: Female
  Weight: 102.1 kg

DRUGS (9)
  1. BYDUREON [Suspect]
     Active Substance: EXENATIDE
     Indication: DIABETES MELLITUS
     Route: 058
     Dates: start: 2005
  2. BENZONATATE. [Concomitant]
     Active Substance: BENZONATATE
     Indication: LUNG ABSCESS
     Route: 048
     Dates: start: 20190325
  3. AMLODIPINE [Concomitant]
     Active Substance: AMLODIPINE BESYLATE
     Indication: HEART ALTERNATION
     Route: 048
  4. GABAPENTIN. [Concomitant]
     Active Substance: GABAPENTIN
     Indication: MUSCLE SPASMS
     Route: 048
     Dates: start: 20190325
  5. LANTUS [Concomitant]
     Active Substance: INSULIN GLARGINE
     Indication: DIABETES MELLITUS
     Route: 058
     Dates: start: 1994
  6. LASIX [Concomitant]
     Active Substance: FUROSEMIDE
     Indication: WATER POLLUTION
     Route: 048
     Dates: start: 20190325
  7. CARVEDILOL. [Concomitant]
     Active Substance: CARVEDILOL
     Indication: HEART ALTERNATION
     Route: 048
     Dates: start: 20190325
  8. VITAMIN D [Concomitant]
     Active Substance: VITAMIN D NOS
     Indication: OSTEOCALCIN
     Route: 048
  9. CALCIUM [Concomitant]
     Active Substance: CALCIUM
     Indication: OSTEOCALCIN
     Route: 048

REACTIONS (21)
  - Vitreous floaters [Unknown]
  - Insomnia [Unknown]
  - Somnolence [Unknown]
  - Device issue [Unknown]
  - Blood pressure increased [Unknown]
  - Ocular vascular disorder [Unknown]
  - Cough [Unknown]
  - Cardiovascular disorder [Unknown]
  - Cardiac disorder [Unknown]
  - Balance disorder [Unknown]
  - Blood sodium decreased [Unknown]
  - Visual impairment [Unknown]
  - Renal impairment [Unknown]
  - Intentional device misuse [Unknown]
  - Malaise [Unknown]
  - Fall [Unknown]
  - Muscle spasms [Unknown]
  - Product storage error [Unknown]
  - Pulmonary oedema [Unknown]
  - Cataract [Unknown]
  - Arrhythmia [Unknown]

NARRATIVE: CASE EVENT DATE: 2017
